FAERS Safety Report 15725832 (Version 1)
Quarter: 2018Q4

REPORT INFORMATION
  Report Type: Other
  Country: ES (occurrence: ES)
  Receive Date: 20181216
  Receipt Date: 20181216
  Transmission Date: 20190205
  Serious: Yes (Hospitalization, Other)
  Sender: FDA-Public Use
  Company Number: ES-APOTEX-2018AP026862

PATIENT
  Age: 32 Year
  Sex: Female
  Weight: 53.5 kg

DRUGS (3)
  1. OMEPRAZOLE. [Suspect]
     Active Substance: OMEPRAZOLE
     Indication: PRODUCT USED FOR UNKNOWN INDICATION
     Dosage: UNK
     Route: 065
     Dates: start: 20180713, end: 20180724
  2. AMOXICILINA                        /00249601/ [Suspect]
     Active Substance: AMOXICILLIN
     Indication: ABDOMINAL PAIN UPPER
     Dosage: 1 G, Q.12H
     Route: 048
     Dates: start: 20180713, end: 20180724
  3. CLARITROMICINA [Suspect]
     Active Substance: CLARITHROMYCIN
     Indication: ABDOMINAL PAIN UPPER
     Dosage: 500 MG, Q.12H
     Route: 048
     Dates: start: 20180713, end: 20180724

REACTIONS (1)
  - Toxic skin eruption [Recovered/Resolved]

NARRATIVE: CASE EVENT DATE: 20180722
